FAERS Safety Report 6160051-6 (Version None)
Quarter: 2009Q2

REPORT INFORMATION
  Report Type: 
  Country: None (occurrence: None)
  Receive Date: 20090420
  Receipt Date: 20090416
  Transmission Date: 20091009
  Serious: Yes (Life-Threatening, Other)
  Sender: FDA-Public Use
  Company Number: MA-ROXANE LABORATORIES, INC.-2009-RO-00392RO

PATIENT
  Age: 52 Year
  Sex: Female
  Weight: 50 kg

DRUGS (3)
  1. LIDOCAINE [Suspect]
     Indication: DYSPHONIA
     Dosage: 20MG
     Route: 048
  2. LIDOCAINE [Suspect]
     Indication: LARYNGOSCOPY
  3. ADRENALINE [Concomitant]
     Indication: RESUSCITATION
     Route: 042

REACTIONS (6)
  - CARDIAC ARREST [None]
  - DRUG ADMINISTRATION ERROR [None]
  - DRUG TOXICITY [None]
  - RESPIRATORY RATE DECREASED [None]
  - SHOCK [None]
  - SOMNOLENCE [None]
